FAERS Safety Report 4600133-0 (Version None)
Quarter: 2005Q1

REPORT INFORMATION
  Report Type: 
  Country: None (occurrence: None)
  Receive Date: 20050307
  Receipt Date: 20050222
  Transmission Date: 20050727
  Serious: Yes (Hospitalization, Other)
  Sender: FDA-Public Use
  Company Number: 2005-02-0005

PATIENT
  Age: 56 Year
  Sex: Female

DRUGS (2)
  1. PACLITAXEL [Suspect]
     Indication: OVARIAN CANCER
     Dosage: INTRAPERITONEAL
     Route: 033
  2. CISPLATIN [Concomitant]

REACTIONS (3)
  - EOSINOPHIL PERCENTAGE INCREASED [None]
  - HAEMORRHAGIC ASCITES [None]
  - LYMPHOCYTE PERCENTAGE DECREASED [None]
